FAERS Safety Report 23364659 (Version 1)
Quarter: 2024Q1

REPORT INFORMATION
  Report Type: Spontaneous
  Country: US (occurrence: None)
  Receive Date: 20240104
  Receipt Date: 20240104
  Transmission Date: 20240410
  Serious: Yes (Other)
  Sender: FDA-Public Use
  Company Number: 2023A294688

PATIENT
  Sex: Female

DRUGS (1)
  1. BREZTRI [Suspect]
     Active Substance: BUDESONIDE\FORMOTEROL\GLYCOPYRROLATE
     Route: 055

REACTIONS (6)
  - Cataract [Unknown]
  - Osteoporosis [Unknown]
  - Urine output decreased [Unknown]
  - Dyspnoea [Unknown]
  - Lung disorder [Unknown]
  - Product dose omission issue [Unknown]
